FAERS Safety Report 7748299-8 (Version None)
Quarter: 2011Q3

REPORT INFORMATION
  Report Type: 
  Country: None (occurrence: None)
  Receive Date: 20110913
  Receipt Date: 20110902
  Transmission Date: 20111222
  Serious: Yes (Other)
  Sender: FDA-Public Use
  Company Number: PHHY2011AT79030

PATIENT
  Sex: Female
  Weight: 4 kg

DRUGS (1)
  1. METHERGINE [Suspect]
     Dosage: 2 U, UNK
     Route: 048
     Dates: start: 20030502

REACTIONS (1)
  - ACCIDENTAL EXPOSURE [None]
